FAERS Safety Report 6313533-8 (Version None)
Quarter: 2009Q3

REPORT INFORMATION
  Report Type: 
  Country: None (occurrence: None)
  Receive Date: 20090818
  Receipt Date: 20090715
  Transmission Date: 20100115
  Serious: No
  Sender: FDA-Public Use
  Company Number: US-BAYER-200929157NA

PATIENT
  Age: 28 Year
  Sex: Female
  Weight: 57 kg

DRUGS (2)
  1. ULTRAVIST 150 [Suspect]
     Indication: COMPUTERISED TOMOGRAM ABDOMEN
     Dosage: TOTAL DAILY DOSE: 100 ML  UNIT DOSE: 100 ML
     Route: 042
     Dates: start: 20090713, end: 20090713
  2. CONTRAST CT SMOOTHIE EZ MEM [Concomitant]
     Dosage: 1 BOTTLE
     Route: 048
     Dates: start: 20090713, end: 20090713

REACTIONS (2)
  - URTICARIA [None]
  - VOMITING [None]
